FAERS Safety Report 10064034 (Version 2)
Quarter: 2014Q2

REPORT INFORMATION
  Report Type: Spontaneous
  Country: CA (occurrence: CA)
  Receive Date: 20140408
  Receipt Date: 20140408
  Transmission Date: 20141212
  Serious: Yes (Other)
  Sender: FDA-Public Use
  Company Number: CA-009507513-1403CAN012479

PATIENT
  Age: 60 Year
  Sex: Male
  Weight: 72 kg

DRUGS (4)
  1. VICTRELIS TRIPLE [Suspect]
     Indication: CHRONIC HEPATITIS C
     Dosage: UNK
     Route: 065
  2. BOCEPREVIR [Suspect]
     Indication: CHRONIC HEPATITIS C
     Dosage: VICTRELIS CAPSULES, STRENGTH 200MG, DAILY DOSE 2400 MG
     Route: 048
     Dates: start: 20131115
  3. PREVACID [Concomitant]
  4. LISINOPRIL [Concomitant]

REACTIONS (1)
  - Genital herpes [Recovering/Resolving]
